FAERS Safety Report 24424509 (Version 4)
Quarter: 2024Q4

REPORT INFORMATION
  Report Type: Report from Study
  Country: US (occurrence: US)
  Receive Date: 20241010
  Receipt Date: 20241104
  Transmission Date: 20250114
  Serious: Yes (Death, Hospitalization, Other)
  Sender: NOVARTIS
  Company Number: US-002147023-NVSC2024US195599

PATIENT
  Age: 5 Year
  Sex: Female
  Weight: 21.8 kg

DRUGS (19)
  1. KISQALI [Suspect]
     Active Substance: RIBOCICLIB
     Indication: Brain stem glioma
     Dosage: 145 MG (2.9 CAPSULES), ONCE A DAY FOR 21 DAYS OF EACH CYCLE
     Route: 048
     Dates: start: 20240606
  2. KISQALI [Suspect]
     Active Substance: RIBOCICLIB
     Dosage: 145 MG (2.9 CAPSULES), ONCE A DAY FOR 21 DAYS OF EACH CYCLE
     Route: 048
     Dates: start: 20240614
  3. KISQALI [Suspect]
     Active Substance: RIBOCICLIB
     Dosage: 145 MG (2.9 CAPSULES), ONCE A DAY FOR 21 DAYS OF EACH CYCLE
     Route: 048
     Dates: end: 20240926
  4. SODIUM CHLORIDE [Concomitant]
     Active Substance: SODIUM CHLORIDE
     Indication: Product used for unknown indication
     Dosage: 436 ML, 20ML/KG X 21.8KG, ONCE BOLUS
     Route: 042
     Dates: start: 20240926, end: 20240926
  5. ALLOPURINOL [Concomitant]
     Active Substance: ALLOPURINOL
     Indication: Blood uric acid increased
     Dosage: 50 MG, QD (0.5 TABLET)
     Route: 048
     Dates: start: 20240409, end: 20240930
  6. AMLODIPINE [Concomitant]
     Active Substance: AMLODIPINE BESYLATE
     Indication: Hypertension
     Dosage: 2.5 MG, BID (1 TABLET)
     Route: 048
     Dates: start: 20240515
  7. AMLODIPINE [Concomitant]
     Active Substance: AMLODIPINE BESYLATE
     Dosage: 2.5 MG, BID (1 TABLET)
     Route: 048
     Dates: start: 20240628
  8. DIPHENHYDRAMINE [Concomitant]
     Active Substance: DIPHENHYDRAMINE
     Indication: Nausea
     Dosage: 5ML (12.5MG TOTAL) BY MOUTH NIGHTLY AS NEEDED
     Route: 048
     Dates: start: 20240515
  9. DIPHENHYDRAMINE [Concomitant]
     Active Substance: DIPHENHYDRAMINE
     Indication: Vomiting
  10. DOCUSATE [Concomitant]
     Active Substance: DOCUSATE
     Indication: Constipation
     Dosage: 5ML (50MG TOTAL) BY MOUTH 2 TIMES A DAY
     Route: 048
     Dates: start: 20240813, end: 20240813
  11. DEXAMETHASONE [Concomitant]
     Active Substance: DEXAMETHASONE
     Indication: Brain stem glioma
     Dosage: 1 TABLET (2MG), 4 TIMES A DAY
     Route: 048
     Dates: start: 20240927
  12. EVEROLIMUS [Concomitant]
     Active Substance: EVEROLIMUS
     Indication: Brain stem glioma
     Dosage: 1.3 ML (DISSOLVE 1 TABLET IN 2ML OF WATER), QD
     Route: 048
     Dates: start: 20240528, end: 20240930
  13. FAMOTIDINE [Concomitant]
     Active Substance: FAMOTIDINE
     Indication: Product used for unknown indication
     Dosage: 16 MG, BID (2 ML)
     Route: 048
     Dates: start: 20240723, end: 20240930
  14. GABAPENTIN [Concomitant]
     Active Substance: GABAPENTIN
     Indication: Back pain
     Dosage: 4ML (200MG TOTAL) BY MOUTH TWO TIMES A DAY
     Route: 048
     Dates: start: 20240926
  15. GABAPENTIN [Concomitant]
     Active Substance: GABAPENTIN
     Indication: Pain in extremity
  16. LEVETIRACETAM [Concomitant]
     Active Substance: LEVETIRACETAM
     Indication: Seizure
     Dosage: 2.5 (250MG), 2 TIMES A DAY
     Route: 048
     Dates: start: 20240927
  17. METOCLOPRAMIDE [Concomitant]
     Active Substance: METOCLOPRAMIDE
     Indication: Nausea
     Dosage: 5 MG, PRN (5 ML, NIGHTLY)
     Route: 048
     Dates: start: 20240515, end: 20240930
  18. OXYCODONE [Concomitant]
     Active Substance: OXYCODONE
     Indication: Pain
     Dosage: 2.5 ML (2.5MG TOTAL) BY MOUTH EVERY 4 HOURS AS NEEDED FOR  PAIN
     Route: 048
     Dates: start: 20240502
  19. SENNA [Concomitant]
     Active Substance: SENNA LEAF\SENNOSIDES\SENNOSIDES A AND B
     Indication: Constipation
     Dosage: 2.5 ML, BID
     Route: 048
     Dates: start: 20231120

REACTIONS (9)
  - Brain stem glioma [Fatal]
  - Malignant neoplasm progression [Fatal]
  - Seizure [Recovered/Resolved]
  - Seizure [Recovered/Resolved]
  - Hypokalaemia [Recovered/Resolved]
  - Diarrhoea [Recovered/Resolved]
  - White blood cell count increased [Recovered/Resolved]
  - Hypercholesterolaemia [Unknown]
  - Impetigo [Recovered/Resolved]

NARRATIVE: CASE EVENT DATE: 20240729
